FAERS Safety Report 4376931-8 (Version None)
Quarter: 2004Q2

REPORT INFORMATION
  Report Type: 
  Country: None (occurrence: None)
  Receive Date: 20040608
  Receipt Date: 20040518
  Transmission Date: 20050107
  Serious: Yes (Hospitalization)
  Sender: FDA-Public Use
  Company Number: DSA_24435_2004

PATIENT
  Age: 27 Year
  Sex: Female

DRUGS (3)
  1. LORAZEPAM [Suspect]
     Dosage: 25 MG ONCE PO
     Route: 048
     Dates: start: 20040513, end: 20040513
  2. STILNOX [Suspect]
     Dosage: 100 MG ONCE PO
     Route: 048
     Dates: start: 20040513, end: 20040513
  3. TYLENOL [Suspect]
     Dosage: 18 TAB ONCE PO
     Route: 048
     Dates: start: 20040513, end: 20040513

REACTIONS (4)
  - FATIGUE [None]
  - HALLUCINATION, VISUAL [None]
  - MULTIPLE DRUG OVERDOSE INTENTIONAL [None]
  - TACHYCARDIA [None]
